FAERS Safety Report 6233381-7 (Version None)
Quarter: 2009Q2

REPORT INFORMATION
  Report Type: 
  Country: None (occurrence: None)
  Receive Date: 20090616
  Receipt Date: 20090616
  Transmission Date: 20091009
  Serious: Yes (Hospitalization)
  Sender: FDA-Public Use
  Company Number: None

PATIENT
  Age: 50 Year
  Sex: Male

DRUGS (1)
  1. SORAFENIB [Suspect]
     Dosage: 400 MG BID QD
     Dates: start: 20090420, end: 20090607

REACTIONS (6)
  - ABDOMINAL PAIN [None]
  - ANOREXIA [None]
  - HUNGER [None]
  - HYPOPHAGIA [None]
  - PROCEDURAL COMPLICATION [None]
  - WEIGHT DECREASED [None]
